FAERS Safety Report 9649563 (Version 1)
Quarter: 2013Q4

REPORT INFORMATION
  Report Type: Spontaneous
  Country: US (occurrence: US)
  Receive Date: 20131028
  Receipt Date: 20131028
  Transmission Date: 20140711
  Serious: Yes (Hospitalization)
  Sender: FDA-Public Use
  Company Number: US-ROXANE LABORATORIES, INC.-2013-RO-01731RO

PATIENT
  Age: 23 Year
  Sex: Male

DRUGS (3)
  1. HYDROMORPHONE [Suspect]
     Indication: PAIN
  2. BUPRENORPHINE HYDROCHLORIDE [Suspect]
     Indication: PAIN
     Dosage: 8 MG
     Route: 060
  3. FENTANYL [Suspect]
     Indication: PAIN
     Route: 062

REACTIONS (1)
  - Hyperaesthesia [Unknown]
